FAERS Safety Report 7580298-1 (Version None)
Quarter: 2011Q2

REPORT INFORMATION
  Report Type: 
  Country: None (occurrence: None)
  Receive Date: 20110622
  Receipt Date: 20110608
  Transmission Date: 20111010
  Serious: Yes (Death, Other)
  Sender: FDA-Public Use
  Company Number: AUR-APL-2011-01531

PATIENT
  Age: 57 Year
  Sex: Female

DRUGS (5)
  1. ZOCOR [Concomitant]
  2. DIOVAN COMP (VALSARTAN) [Concomitant]
  3. METFORMIN (METFORMIN) [Suspect]
     Indication: DIABETES MELLITUS
     Dosage: 3 GM (1 GM,3 IN 1 D),ORAL
     Route: 048
  4. ACTOS [Concomitant]
  5. TEGRETOL [Concomitant]

REACTIONS (4)
  - CARDIAC ARREST [None]
  - METABOLIC ACIDOSIS [None]
  - DIARRHOEA [None]
  - BLOOD CREATININE INCREASED [None]
